FAERS Safety Report 12608745 (Version 2)
Quarter: 2017Q1

REPORT INFORMATION
  Report Type: Spontaneous
  Country: US (occurrence: US)
  Receive Date: 20160729
  Receipt Date: 20170323
  Transmission Date: 20170428
  Serious: Yes (Hospitalization)
  Sender: FDA-Public Use
  Company Number: US-BIOMARINAP-US-2016-110576

PATIENT
  Sex: Female
  Weight: 1.79 kg

DRUGS (1)
  1. KUVAN [Suspect]
     Active Substance: SAPROPTERIN DIHYDROCHLORIDE
     Indication: PHENYLKETONURIA
     Dosage: 1500 MG, QD
     Route: 064
     Dates: start: 20160328, end: 201607

REACTIONS (5)
  - Premature baby [Recovered/Resolved with Sequelae]
  - Retinopathy of prematurity [Recovered/Resolved with Sequelae]
  - Necrotising enterocolitis neonatal [Recovered/Resolved with Sequelae]
  - Low birth weight baby [Recovered/Resolved with Sequelae]
  - Intestinal perforation [Recovered/Resolved with Sequelae]
